FAERS Safety Report 13774555 (Version 1)
Quarter: 2017Q3

REPORT INFORMATION
  Report Type: Spontaneous
  Country: GB (occurrence: GB)
  Receive Date: 20170720
  Receipt Date: 20170720
  Transmission Date: 20171127
  Serious: Yes (Other)
  Sender: FDA-Public Use
  Company Number: GB-BAYER-2017-132962

PATIENT
  Age: 23 Year
  Sex: Female
  Weight: 76.2 kg

DRUGS (1)
  1. YASMIN [Suspect]
     Active Substance: DROSPIRENONE\ETHINYL ESTRADIOL
     Indication: CONTRACEPTION
     Dosage: 1 DF, QD
     Route: 048
     Dates: start: 20170511, end: 20170522

REACTIONS (9)
  - Paraesthesia [Unknown]
  - Panic attack [Not Recovered/Not Resolved]
  - Muscular weakness [Unknown]
  - Anaemia folate deficiency [Recovering/Resolving]
  - Palpitations [Unknown]
  - Anxiety [Unknown]
  - Lethargy [Unknown]
  - Myalgia [Unknown]
  - Fatigue [Unknown]

NARRATIVE: CASE EVENT DATE: 201705
